FAERS Safety Report 10074636 (Version 2)
Quarter: 2014Q2

REPORT INFORMATION
  Report Type: Spontaneous
  Country: TW (occurrence: TW)
  Receive Date: 20140414
  Receipt Date: 20140416
  Transmission Date: 20141212
  Serious: Yes (Death, Other)
  Sender: FDA-Public Use
  Company Number: TW-AMGEN-TWNSP2014026274

PATIENT
  Age: 74 Year
  Sex: Female

DRUGS (1)
  1. ENBREL [Suspect]
     Indication: ANKYLOSING SPONDYLITIS
     Dosage: 25 MG, TWICE PER WEEK
     Route: 058
     Dates: start: 20120927, end: 201401

REACTIONS (2)
  - Metastasis [Unknown]
  - Respiratory failure [Fatal]
